FAERS Safety Report 12735652 (Version 1)
Quarter: 2016Q3

REPORT INFORMATION
  Report Type: Spontaneous
  Country: GB (occurrence: GB)
  Receive Date: 20160912
  Receipt Date: 20160912
  Transmission Date: 20161109
  Serious: Yes (Other)
  Sender: FDA-Public Use
  Company Number: GB-TEVA-689432ACC

PATIENT
  Sex: Female

DRUGS (3)
  1. RAMIPRIL. [Suspect]
     Active Substance: RAMIPRIL
     Indication: EJECTION FRACTION DECREASED
     Route: 065
  2. HERCEPTIN [Suspect]
     Active Substance: TRASTUZUMAB
     Indication: PRODUCT USED FOR UNKNOWN INDICATION
     Route: 058
  3. LOSARTAN. [Concomitant]
     Active Substance: LOSARTAN
     Dosage: 12.5 MILLIGRAM DAILY;
     Route: 065

REACTIONS (18)
  - Constipation [Unknown]
  - Dry skin [Unknown]
  - Palpitations [Unknown]
  - Lacrimation increased [Unknown]
  - Dizziness [Unknown]
  - Abdominal pain upper [Unknown]
  - Anxiety [Unknown]
  - Diarrhoea [Unknown]
  - Pain in extremity [Unknown]
  - Neuropathy peripheral [Unknown]
  - Myalgia [Unknown]
  - Ejection fraction decreased [Unknown]
  - Rhinorrhoea [Unknown]
  - Asthenia [Unknown]
  - Lethargy [Unknown]
  - Erythema [Unknown]
  - Depression [Unknown]
  - Muscle spasms [Unknown]
